FAERS Safety Report 9471088 (Version 1)
Quarter: 2013Q3

REPORT INFORMATION
  Report Type: Spontaneous
  Country: US (occurrence: US)
  Receive Date: 20130822
  Receipt Date: 20130822
  Transmission Date: 20140515
  Serious: No
  Sender: FDA-Public Use
  Company Number: US-009507513-1307USA014840

PATIENT
  Age: 78 Year
  Sex: Female

DRUGS (8)
  1. METHYLPREDNISOLONE SODIUM SUCCINATE [Suspect]
     Indication: OPTIC NEUROPATHY
     Dosage: 1000MG, QD
     Route: 042
  2. METHYLPREDNISOLONE SODIUM SUCCINATE [Suspect]
     Indication: RADIATION NEUROPATHY
  3. LATANOPROST [Concomitant]
  4. TIMOLOL MALEATE [Concomitant]
  5. ROSUVASTATIN CALCIUM [Concomitant]
  6. VALSARTAN [Concomitant]
  7. ASPIRIN [Concomitant]
  8. ESOMEPRAZOLE MAGNESIUM [Concomitant]

REACTIONS (1)
  - Adverse event [Unknown]
